FAERS Safety Report 24765315 (Version 1)
Quarter: 2024Q4

REPORT INFORMATION
  Report Type: Spontaneous
  Country: FR (occurrence: FR)
  Receive Date: 20241223
  Receipt Date: 20241223
  Transmission Date: 20250115
  Serious: Yes (Other)
  Sender: AUROBINDO
  Company Number: FR-AFSSAPS-LL2024002239

PATIENT
  Age: 3 Month
  Sex: Male

DRUGS (2)
  1. GABAPENTIN [Suspect]
     Active Substance: GABAPENTIN
     Indication: Endometriosis
     Dosage: 1800 MILLIGRAM, ONCE A DAY (600 MG 3X/DAY)
     Route: 065
     Dates: start: 20231206
  2. AMITRIPTYLINE HYDROCHLORIDE [Suspect]
     Active Substance: AMITRIPTYLINE HYDROCHLORIDE
     Indication: Endometriosis
     Dosage: 50 GTT DROPS, ONCE A DAY (50 DROPS IN THE EVENING)
     Route: 065
     Dates: start: 20231206

REACTIONS (3)
  - Foetal growth restriction [Recovered/Resolved]
  - Term birth [Recovered/Resolved]
  - Maternal exposure during pregnancy [Recovered/Resolved]

NARRATIVE: CASE EVENT DATE: 20231206
